FAERS Safety Report 24881207 (Version 2)
Quarter: 2025Q1

REPORT INFORMATION
  Report Type: Spontaneous
  Country: EG (occurrence: EG)
  Receive Date: 20250124
  Receipt Date: 20250211
  Transmission Date: 20250409
  Serious: Yes (Hospitalization, Other)
  Sender: NOVO NORDISK
  Company Number: EG-NOVOPROD-1349352

PATIENT
  Age: 45 Year
  Sex: Female
  Weight: 88 kg

DRUGS (1)
  1. TRESIBA [Suspect]
     Active Substance: INSULIN DEGLUDEC
     Indication: Type 1 diabetes mellitus
     Dosage: 30 ML, QD
     Dates: start: 20240424, end: 20250106

REACTIONS (3)
  - Diabetic ketoacidosis [Not Recovered/Not Resolved]
  - Glycosylated haemoglobin increased [Not Recovered/Not Resolved]
  - Diabetes mellitus inadequate control [Not Recovered/Not Resolved]

NARRATIVE: CASE EVENT DATE: 20250101
